FAERS Safety Report 7480500-0 (Version None)
Quarter: 2011Q2

REPORT INFORMATION
  Report Type: 
  Country: None (occurrence: None)
  Receive Date: 20110505
  Receipt Date: 20020731
  Transmission Date: 20111010
  Serious: Yes (Hospitalization, Other)
  Sender: FDA-Public Use
  Company Number: DSA_21880_2002

PATIENT
  Age: 54 Year
  Sex: Male

DRUGS (1)
  1. DILTIAZEM [Suspect]
     Indication: PRODUCT USED FOR UNKNOWN INDICATION
     Dosage: (DF ORAL)
     Route: 048

REACTIONS (9)
  - PRURITUS [None]
  - LEUKOCYTOSIS [None]
  - DERMATITIS EXFOLIATIVE [None]
  - RASH [None]
  - ERYTHEMA MULTIFORME [None]
  - SKIN TEST POSITIVE [None]
  - SKIN PLAQUE [None]
  - SKIN LESION [None]
  - EOSINOPHILIA [None]
